FAERS Safety Report 6756986-3 (Version None)
Quarter: 2010Q2

REPORT INFORMATION
  Report Type: 
  Country: None (occurrence: None)
  Receive Date: 20100604
  Receipt Date: 20100527
  Transmission Date: 20101027
  Serious: Yes (Death)
  Sender: FDA-Public Use
  Company Number: GB-ABBOTT-10P-167-0632642-00

PATIENT
  Age: 19 Year
  Sex: Male

DRUGS (11)
  1. VALPROATE SODIUM [Suspect]
     Indication: MOOD ALTERED
     Route: 048
     Dates: start: 20090713
  2. RISPERIDONE [Concomitant]
     Indication: DRUG USE FOR UNKNOWN INDICATION
  3. LOSEC I.V. [Concomitant]
     Indication: DRUG USE FOR UNKNOWN INDICATION
  4. NULYTELY [Concomitant]
     Indication: DRUG USE FOR UNKNOWN INDICATION
  5. MELATONIN [Concomitant]
     Indication: DRUG USE FOR UNKNOWN INDICATION
  6. VALLERGAN [Concomitant]
     Indication: DRUG USE FOR UNKNOWN INDICATION
  7. LEVOTHYROXINE SODIUM [Concomitant]
     Indication: DRUG USE FOR UNKNOWN INDICATION
  8. TEMAZEPAM [Concomitant]
     Indication: DRUG USE FOR UNKNOWN INDICATION
  9. LEVOTHYROXINE SODIUM [Concomitant]
     Indication: DRUG USE FOR UNKNOWN INDICATION
  10. FLUTICASONE PROPIONATE [Concomitant]
     Indication: DRUG USE FOR UNKNOWN INDICATION
     Dates: start: 20060101
  11. MACROGOL [Concomitant]
     Indication: DRUG USE FOR UNKNOWN INDICATION
     Dates: start: 20060101

REACTIONS (3)
  - PANCREATITIS [None]
  - RENAL FAILURE ACUTE [None]
  - SEPSIS [None]
